FAERS Safety Report 10244566 (Version 1)
Quarter: 2014Q2

REPORT INFORMATION
  Report Type: Spontaneous
  Country: US (occurrence: US)
  Receive Date: 20140618
  Receipt Date: 20140618
  Transmission Date: 20141212
  Serious: Yes (Other)
  Sender: FDA-Public Use
  Company Number: US-GLAXOSMITHKLINE-A1068381A

PATIENT
  Age: 52 Year
  Sex: Female

DRUGS (7)
  1. ADVAIR [Suspect]
     Indication: ASTHMA
     Dosage: 1PUFF TWICE PER DAY
     Route: 065
     Dates: start: 20120608
  2. LAMICTAL [Suspect]
     Indication: CONVULSION
     Dosage: 150MG PER DAY
     Route: 048
     Dates: start: 2009
  3. VERAMYST [Suspect]
     Indication: ASTHMA
     Route: 045
     Dates: start: 20120608
  4. FLONASE [Suspect]
     Indication: ASTHMA
     Route: 045
     Dates: end: 2012
  5. ASPIRIN [Concomitant]
  6. EXCEDRIN [Concomitant]
  7. RANITIDINE [Concomitant]

REACTIONS (4)
  - Coeliac disease [Not Recovered/Not Resolved]
  - Memory impairment [Not Recovered/Not Resolved]
  - Lactose intolerance [Not Recovered/Not Resolved]
  - Headache [Recovered/Resolved]
